FAERS Safety Report 25148300 (Version 1)
Quarter: 2025Q2

REPORT INFORMATION
  Report Type: Spontaneous
  Country: US (occurrence: US)
  Receive Date: 20250402
  Receipt Date: 20250402
  Transmission Date: 20250716
  Serious: No
  Sender: Haleon PLC
  Company Number: US-HALEON-2236016

PATIENT

DRUGS (1)
  1. ROBITUSSIN NIGHTTIME COUGH DM SOFT CHEWS [Suspect]
     Active Substance: DEXTROMETHORPHAN HYDROBROMIDE\DOXYLAMINE SUCCINATE
     Indication: Product used for unknown indication

REACTIONS (2)
  - Dysgeusia [Unknown]
  - Wrong technique in product usage process [Unknown]
